FAERS Safety Report 21765009 (Version 1)
Quarter: 2022Q4

REPORT INFORMATION
  Report Type: Spontaneous
  Country: US (occurrence: None)
  Receive Date: 20221221
  Receipt Date: 20221221
  Transmission Date: 20230113
  Serious: No
  Sender: FDA-Public Use
  Company Number: None

PATIENT

DRUGS (2)
  1. METADATE CD [Suspect]
     Active Substance: METHYLPHENIDATE HYDROCHLORIDE
     Route: 048
  2. METADATE ER [Suspect]
     Active Substance: METHYLPHENIDATE HYDROCHLORIDE
     Route: 048

REACTIONS (4)
  - Product dispensing error [None]
  - Incorrect product dosage form administered [None]
  - Transcription medication error [None]
  - Product dispensing error [None]
